FAERS Safety Report 10793203 (Version 2)
Quarter: 2015Q1

REPORT INFORMATION
  Report Type: Report from Study
  Country: DE (occurrence: DE)
  Receive Date: 20150213
  Receipt Date: 20150327
  Transmission Date: 20150721
  Serious: Yes (Hospitalization)
  Sender: FDA-Public Use
  Company Number: DE-AMGEN-2014-2220

PATIENT
  Age: 84 Year
  Sex: Male
  Weight: 80 kg

DRUGS (42)
  1. EZETROL [Concomitant]
     Active Substance: EZETIMIBE
     Indication: HYPERCHOLESTEROLAEMIA
     Route: 048
     Dates: start: 1994, end: 20141001
  2. RAMIPRIL. [Concomitant]
     Active Substance: RAMIPRIL
     Indication: HYPERTENSION
     Dates: start: 1994, end: 20140925
  3. ZOMETA [Concomitant]
     Active Substance: ZOLEDRONIC ACID
     Indication: PROPHYLAXIS
     Route: 042
     Dates: start: 20140922
  4. LEGALON [Concomitant]
     Active Substance: MILK THISTLE
  5. RAMIPRIL. [Concomitant]
     Active Substance: RAMIPRIL
     Route: 048
     Dates: start: 20140930
  6. ZOFRAN [Concomitant]
     Active Substance: ONDANSETRON HYDROCHLORIDE
     Indication: NAUSEA
     Route: 048
     Dates: start: 20140922, end: 20140927
  7. DEXAMETHASON                       /00016001/ [Concomitant]
     Active Substance: DEXAMETHASONE
     Indication: CHEMOTHERAPY
     Dosage: 4 MG, UNK
     Route: 048
     Dates: start: 20140929, end: 20141008
  8. REKAWAN [Concomitant]
     Active Substance: POTASSIUM CHLORIDE
     Route: 048
     Dates: start: 20140930, end: 20141001
  9. ALLOPURINOL. [Concomitant]
     Active Substance: ALLOPURINOL
     Indication: HYPERURICAEMIA
     Route: 048
  10. MOVICOL [Concomitant]
     Active Substance: POLYETHYLENE GLYCOL 3350\POTASSIUM CHLORIDE\SODIUM BICARBONATE\SODIUM CHLORIDE
     Indication: CONSTIPATION
     Route: 048
     Dates: start: 20140901, end: 20140928
  11. NOVALGIN [Concomitant]
     Active Substance: METAMIZOLE SODIUM
     Indication: PAIN
     Route: 048
     Dates: start: 20140901
  12. OXAZEPAM. [Concomitant]
     Active Substance: OXAZEPAM
     Indication: INSOMNIA
     Route: 048
     Dates: start: 20140901, end: 20141006
  13. BEPANTHEN                          /00178901/ [Concomitant]
     Indication: SKIN FISSURES
     Dosage: UNK UNK, QD
     Route: 050
     Dates: start: 20140928, end: 20140929
  14. SIMETHICONE [Concomitant]
     Active Substance: DIMETHICONE\SILICON DIOXIDE\SIMETHICONE
     Indication: ABDOMINAL DISTENSION
     Dosage: UNK UNK, QD
     Route: 048
     Dates: start: 20140930, end: 20140930
  15. CARFILZOMIB [Suspect]
     Active Substance: CARFILZOMIB
     Indication: PLASMA CELL MYELOMA
     Dosage: FREQ. TEXT: DAYS 1, 2
     Route: 042
     Dates: start: 20140922, end: 20140923
  16. CARFILZOMIB [Suspect]
     Active Substance: CARFILZOMIB
     Route: 042
  17. PREDNISONE. [Suspect]
     Active Substance: PREDNISONE
     Indication: PLASMA CELL MYELOMA
     Dosage: FREQUENCY: 4 EVERY 42 DAYS; FREQ. TEXT: DAYS 1-4, EVERY 42 DAYS
     Route: 048
     Dates: start: 20140922
  18. TOREM [Concomitant]
     Active Substance: TORSEMIDE
     Route: 042
     Dates: start: 20140925
  19. EMEND [Concomitant]
     Active Substance: APREPITANT
     Indication: MALAISE
     Route: 042
     Dates: start: 20140930, end: 20140930
  20. CARFILZOMIB [Suspect]
     Active Substance: CARFILZOMIB
     Dosage: FREQUENCY: 6 EVERY 36 DAYS; FREQ. TEXT: DAYS 8, 9, 22, 23, 29, AND 30
     Route: 042
     Dates: start: 20140929, end: 20140930
  21. MELPHALAN [Suspect]
     Active Substance: MELPHALAN
     Indication: PLASMA CELL MYELOMA
     Dosage: FREQUENCY: 4 EVERY 42 DAYS; FREQ. TEXT: DAYS 1-4, EVERY 42 DAYS
     Route: 048
     Dates: start: 20140922
  22. TAZOBAC [Concomitant]
     Active Substance: PIPERACILLIN SODIUM\TAZOBACTAM SODIUM
     Indication: C-REACTIVE PROTEIN INCREASED
     Route: 042
     Dates: start: 20140925, end: 20140930
  23. TAMSULOSIN [Concomitant]
     Active Substance: TAMSULOSIN
     Indication: BLADDER PAIN
     Route: 048
     Dates: start: 20140925
  24. CONCOR/BISOPROLOL [Concomitant]
     Indication: HYPERTENSION
     Route: 048
     Dates: start: 20140930
  25. ALDACTONE [Concomitant]
     Active Substance: SPIRONOLACTONE
     Indication: PRIMARY HYPERALDOSTERONISM
     Route: 048
     Dates: start: 20141001, end: 20141002
  26. MICROKLIST [Concomitant]
     Indication: CONSTIPATION
     Dosage: UNK UNK, QD
     Route: 054
     Dates: start: 20140924, end: 20140925
  27. DEKRISTOL [Concomitant]
     Active Substance: CHOLECALCIFEROL
     Indication: OSTEOPENIA
     Route: 048
  28. ACICLOVIR [Concomitant]
     Active Substance: ACYCLOVIR
     Indication: PROPHYLAXIS
     Route: 048
     Dates: start: 20140922, end: 20141002
  29. PREDNISONE. [Suspect]
     Active Substance: PREDNISONE
     Dosage: UNK
     Route: 048
  30. METOPROLOL [Concomitant]
     Active Substance: METOPROLOL
     Indication: HYPERTENSION
     Route: 048
     Dates: start: 1994, end: 20141001
  31. TOREM [Concomitant]
     Active Substance: TORSEMIDE
     Indication: HYPERTENSION
     Route: 048
     Dates: start: 1994, end: 20141002
  32. PALLADON [Concomitant]
     Active Substance: HYDROMORPHONE
     Indication: PAIN
     Route: 048
     Dates: start: 20140910, end: 20141002
  33. AQUAPHOR [Concomitant]
     Active Substance: PETROLATUM
     Indication: DYSPNOEA
     Route: 048
     Dates: start: 20140925, end: 20140925
  34. CALCIUM [Concomitant]
     Active Substance: CALCIUM
     Indication: HYPOCALCAEMIA
     Route: 048
     Dates: start: 20140926, end: 20140926
  35. BUSCOPAN [Concomitant]
     Active Substance: BUTYLSCOPOLAMINE BROMIDE
     Indication: BLADDER SPASM
     Dosage: 1 OTHER, AS NECESSARY
     Route: 042
     Dates: start: 20141001, end: 20141001
  36. REKAWAN [Concomitant]
     Active Substance: POTASSIUM CHLORIDE
     Indication: HYPOCALCAEMIA
     Route: 048
     Dates: start: 20140902, end: 20140903
  37. PANTOZOL [Concomitant]
     Active Substance: PANTOPRAZOLE SODIUM
     Indication: PROPHYLAXIS
     Route: 048
     Dates: start: 20140902, end: 20141002
  38. ZOFRAN [Concomitant]
     Active Substance: ONDANSETRON HYDROCHLORIDE
     Route: 042
     Dates: start: 20140930, end: 20141002
  39. LASIX [Concomitant]
     Active Substance: FUROSEMIDE
     Indication: HYPERTENSION
     Route: 048
     Dates: start: 20140924, end: 20140924
  40. TAVANIC [Concomitant]
     Active Substance: LEVOFLOXACIN
     Indication: C-REACTIVE PROTEIN INCREASED
     Route: 048
     Dates: start: 20140930, end: 20141001
  41. CONEREGEL [Concomitant]
     Indication: DRY EYE
     Route: 047
     Dates: start: 20140923, end: 20140923
  42. CLEXANE [Concomitant]
     Active Substance: ENOXAPARIN SODIUM
     Indication: PROPHYLAXIS
     Route: 058
     Dates: start: 20140901, end: 20140902

REACTIONS (1)
  - Hepatotoxicity [Recovering/Resolving]

NARRATIVE: CASE EVENT DATE: 20141002
